FAERS Safety Report 25073122 (Version 1)
Quarter: 2025Q1

REPORT INFORMATION
  Report Type: Spontaneous
  Country: US (occurrence: US)
  Receive Date: 20250313
  Receipt Date: 20250313
  Transmission Date: 20250409
  Serious: No
  Sender: AMGEN
  Company Number: US-AMGEN-USASP2025045329

PATIENT
  Age: 81 Year
  Sex: Female

DRUGS (5)
  1. TEPROTUMUMAB [Suspect]
     Active Substance: TEPROTUMUMAB
     Indication: Endocrine ophthalmopathy
     Dosage: UNK MILLIGRAM/KILOGRAM 8 TIMES, Q3WK
     Route: 040
  2. LEVOTHYROXINE [Concomitant]
     Active Substance: LEVOTHYROXINE
  3. METOPROLOL [Concomitant]
     Active Substance: METOPROLOL
  4. RESTASIS [Concomitant]
     Active Substance: CYCLOSPORINE
  5. TIMOPTIC [Concomitant]
     Active Substance: TIMOLOL MALEATE

REACTIONS (3)
  - Ageusia [Unknown]
  - Alopecia [Unknown]
  - Weight decreased [Unknown]
